FAERS Safety Report 6508581-9 (Version None)
Quarter: 2009Q4

REPORT INFORMATION
  Report Type: 
  Country: None (occurrence: None)
  Receive Date: 20091221
  Receipt Date: 20091208
  Transmission Date: 20100525
  Serious: Yes (Other)
  Sender: FDA-Public Use
  Company Number: US-ELI_LILLY_AND_COMPANY-US200910005943

PATIENT
  Age: 47 Year
  Sex: Male

DRUGS (7)
  1. ADCIRCA [Suspect]
     Indication: PULMONARY ARTERIAL HYPERTENSION
     Dosage: 20 MG, UNK
     Dates: start: 20091015
  2. VIRAMUNE [Concomitant]
     Dosage: 200 MG, 2/D
  3. AMBIEN [Concomitant]
     Dosage: 10 MG, DAILY (1/D)
  4. ATAZANAVIR [Concomitant]
     Dosage: 400 MG, DAILY (1/D)
  5. LACTULOSE [Concomitant]
     Dosage: 10 G, DAILY (1/D)
  6. TRIZIVIR [Concomitant]
     Dosage: UNK, DAILY (1/D)
  7. RITONAVIR [Concomitant]

REACTIONS (1)
  - NEUTROPHIL COUNT DECREASED [None]
